FAERS Safety Report 5207657-6 (Version None)
Quarter: 2007Q1

REPORT INFORMATION
  Report Type: 
  Country: None (occurrence: None)
  Receive Date: 20070112
  Receipt Date: 20070103
  Transmission Date: 20070707
  Serious: Yes (Other)
  Sender: FDA-Public Use
  Company Number: US-PFIZER INC-2006147355

PATIENT
  Sex: Male
  Weight: 124.7 kg

DRUGS (3)
  1. CHANTIX [Suspect]
     Indication: SMOKING CESSATION THERAPY
     Dates: start: 20061116, end: 20061123
  2. VITAMINS [Concomitant]
  3. CONCERTA [Concomitant]

REACTIONS (5)
  - CONSTIPATION [None]
  - DYSGEUSIA [None]
  - FLATULENCE [None]
  - HAEMATOCHEZIA [None]
  - NAUSEA [None]
